FAERS Safety Report 11152926 (Version 1)
Quarter: 2015Q2

REPORT INFORMATION
  Report Type: Spontaneous
  Country: FR (occurrence: None)
  Receive Date: 20150528
  Receipt Date: 20150528
  Transmission Date: 20150821
  Serious: Yes (Hospitalization)
  Sender: FDA-Public Use
  Company Number: 8025972D

PATIENT
  Age: 78 Year
  Sex: Female

DRUGS (6)
  1. PREDNISONE (PREDNISONE) [Suspect]
     Active Substance: PREDNISONE
     Indication: IMMUNE THROMBOCYTOPENIC PURPURA
     Route: 048
     Dates: start: 20141204
  2. MIRTAZAPINE (MIRTAZAPINE) (MIRTAZAPINE) [Suspect]
     Active Substance: MIRTAZAPINE
     Indication: DEPRESSION
     Route: 048
  3. NEBIVOLOL (NEBIVOLOL) (NEBIVOLOL) [Suspect]
     Active Substance: NEBIVOLOL
     Indication: CARDIAC FAILURE
     Route: 048
     Dates: start: 20150323
  4. DISULONE [Suspect]
     Active Substance: DAPSONE
     Indication: IMMUNE THROMBOCYTOPENIC PURPURA
     Dosage: 100 MG DAPSON + 100 MG IRON OXALATE ?ORAL?
     Route: 048
     Dates: start: 20150313
  5. LEVOTHYROX (LEVOTHYROXINE SODIUM) [Suspect]
     Active Substance: LEVOTHYROXINE SODIUM
     Indication: THYROID DISORDER
  6. OMEPRAZOLE (OMEPRAZOLE) [Suspect]
     Active Substance: OMEPRAZOLE
     Indication: GASTROOESOPHAGEAL REFLUX DISEASE
     Route: 048

REACTIONS (2)
  - Immune thrombocytopenic purpura [None]
  - Disease recurrence [None]

NARRATIVE: CASE EVENT DATE: 20150408
